FAERS Safety Report 6817200-3 (Version None)
Quarter: 2010Q3

REPORT INFORMATION
  Report Type: 
  Country: None (occurrence: None)
  Receive Date: 20100706
  Receipt Date: 20100625
  Transmission Date: 20110219
  Serious: Yes (Death, Hospitalization)
  Sender: FDA-Public Use
  Company Number: JP-ROCHE-648317

PATIENT
  Sex: Male
  Weight: 36.2 kg

DRUGS (16)
  1. TOCILIZUMAB [Suspect]
     Indication: RHEUMATOID ARTHRITIS
     Route: 041
     Dates: start: 20090526, end: 20090526
  2. TOCILIZUMAB [Suspect]
     Route: 041
     Dates: start: 20090616, end: 20090616
  3. TOCILIZUMAB [Suspect]
     Route: 041
     Dates: start: 20090818, end: 20090818
  4. TOCILIZUMAB [Suspect]
     Route: 041
     Dates: start: 20090908, end: 20090908
  5. TOCILIZUMAB [Suspect]
     Route: 041
     Dates: start: 20091006, end: 20091006
  6. TOCILIZUMAB [Suspect]
     Route: 041
     Dates: start: 20091201, end: 20091201
  7. TOCILIZUMAB [Suspect]
     Route: 041
     Dates: start: 20091225, end: 20091225
  8. PREDNISOLONE [Concomitant]
     Dosage: FORM: PERORAL AGENT
     Route: 048
  9. ZYLORIC [Concomitant]
     Route: 048
  10. LASIX [Concomitant]
     Dosage: DOSE FORM: PERORAL AGENT
     Route: 048
  11. ADALAT [Concomitant]
     Dosage: DOSE FORM REPORTED AS SUSTAINED RELEASE TABLET.
     Route: 048
  12. ACECOL [Concomitant]
     Route: 048
  13. BETAZOL [Concomitant]
     Dosage: DOSE FORM REPORTED AS SUSTAINED RELEASE TABLET.
     Route: 048
  14. LOXONIN [Concomitant]
     Dosage: DOSE FORM: PERORAL AGENT
     Route: 048
  15. MAGMITT [Concomitant]
     Route: 048
  16. ACINON [Concomitant]
     Route: 048

REACTIONS (3)
  - ABDOMINAL PAIN UPPER [None]
  - COLITIS [None]
  - PANCREATITIS ACUTE [None]
